FAERS Safety Report 9053981 (Version 1)
Quarter: 2013Q1

REPORT INFORMATION
  Report Type: Spontaneous
  Country: US (occurrence: None)
  Receive Date: 20130201
  Receipt Date: 20130201
  Transmission Date: 20140127
  Serious: Yes (Hospitalization)
  Sender: FDA-Public Use
  Company Number: None

PATIENT
  Age: 28 Year
  Sex: Male
  Weight: 80.5 kg

DRUGS (1)
  1. TRAZODONE [Suspect]
     Indication: INSOMNIA
     Route: 048
     Dates: start: 20120630, end: 20130125

REACTIONS (1)
  - Priapism [None]
